FAERS Safety Report 22208341 (Version 1)
Quarter: 2023Q2

REPORT INFORMATION
  Report Type: Spontaneous
  Country: US (occurrence: None)
  Receive Date: 20230413
  Receipt Date: 20230413
  Transmission Date: 20230721
  Serious: Yes (Hospitalization)
  Sender: FDA-Public Use
  Company Number: None

PATIENT
  Age: 69 Year
  Sex: Male
  Weight: 74.84 kg

DRUGS (27)
  1. ABIRATERONE [Suspect]
     Active Substance: ABIRATERONE
     Indication: Prostate cancer
     Dosage: FREQUENCY : DAILY;?
     Route: 048
  2. ACYCLOVIR [Concomitant]
     Active Substance: ACYCLOVIR
  3. AMINO ACIDS [Concomitant]
     Active Substance: AMINO ACIDS
  4. CASODEX [Concomitant]
     Active Substance: BICALUTAMIDE
  5. DEXAMETHASONE [Concomitant]
  6. ELECTROLYTES NOS [Concomitant]
     Active Substance: ELECTROLYTES NOS
  7. ELIQUIS [Suspect]
     Active Substance: APIXABAN
  8. FOLIC ACID [Concomitant]
     Active Substance: FOLIC ACID
  9. LENALIDOMIDE [Concomitant]
     Active Substance: LENALIDOMIDE
  10. LUPRON [Concomitant]
  11. VITAMINS [Concomitant]
     Active Substance: VITAMINS
  12. OLMESARTAN-AMLODIPINE-HCTZ [Concomitant]
  13. ONDANSETRON [Concomitant]
  14. OXYCODONE [Concomitant]
  15. POTASSIUM [Concomitant]
     Active Substance: POTASSIUM
  16. PRADAXA [Concomitant]
     Active Substance: DABIGATRAN ETEXILATE MESYLATE
  17. PROTEIN [Concomitant]
  18. REVLIMID [Concomitant]
     Active Substance: LENALIDOMIDE
  19. MGANESIUM [Concomitant]
  20. THALOMID [Concomitant]
     Active Substance: THALIDOMIDE
  21. TRAMADOL [Concomitant]
  22. VELCADE [Concomitant]
     Active Substance: BORTEZOMIB
  23. VITAMIN A [Concomitant]
     Active Substance: VITAMIN A
  24. VITAMIN D [Concomitant]
     Active Substance: VITAMIN D NOS
  25. VITAMIN E [Concomitant]
     Active Substance: .ALPHA.-TOCOPHEROL
  26. VITAMIN B COMPLEX [Concomitant]
     Active Substance: CYANOCOBALAMIN\DEXPANTHENOL\NIACINAMIDE\PYRIDOXINE HYDROCHLORIDE\RIBOFLAVIN 5^-PHOSPHATE SODIUM\THIA
  27. XTANDI [Concomitant]
     Active Substance: ENZALUTAMIDE

REACTIONS (1)
  - Appendix disorder [None]
